FAERS Safety Report 4946151-4 (Version None)
Quarter: 2006Q1

REPORT INFORMATION
  Report Type: 
  Country: None (occurrence: None)
  Receive Date: 20060118
  Receipt Date: 20050125
  Transmission Date: 20060701
  Serious: Yes (Other)
  Sender: FDA-Public Use
  Company Number: BDI-006862

PATIENT
  Age: 18 Year
  Sex: Female

DRUGS (2)
  1. PROHANCE [Suspect]
     Indication: NUCLEAR MAGNETIC RESONANCE IMAGING
     Dosage: 10 ML ONCE IV
     Route: 042
     Dates: start: 20050118, end: 20050118
  2. PROHANCE [Suspect]
     Indication: VISUAL DISTURBANCE
     Dosage: 10 ML ONCE IV
     Route: 042
     Dates: start: 20050118, end: 20050118

REACTIONS (1)
  - HYPERSENSITIVITY [None]
